FAERS Safety Report 13318664 (Version 1)
Quarter: 2017Q1

REPORT INFORMATION
  Report Type: Spontaneous
  Country: US (occurrence: US)
  Receive Date: 20170309
  Receipt Date: 20170309
  Transmission Date: 20170428
  Serious: No
  Sender: FDA-Public Use
  Company Number: None

PATIENT
  Age: 77 Year
  Sex: Male

DRUGS (6)
  1. AFINITOR [Suspect]
     Active Substance: EVEROLIMUS
     Indication: ARTHROPATHY
  2. AFINITOR [Suspect]
     Active Substance: EVEROLIMUS
     Indication: NEOPLASM MALIGNANT
  3. AFINITOR [Suspect]
     Active Substance: EVEROLIMUS
     Indication: ESSENTIAL HYPERTENSION
  4. AFINITOR [Suspect]
     Active Substance: EVEROLIMUS
     Indication: CARCINOID TUMOUR
  5. AFINITOR [Suspect]
     Active Substance: EVEROLIMUS
     Indication: TYPE 2 DIABETES MELLITUS
  6. AFINITOR [Suspect]
     Active Substance: EVEROLIMUS
     Indication: PULMONARY EMBOLISM

REACTIONS (3)
  - Diarrhoea [None]
  - Drug ineffective [None]
  - Rash [None]

NARRATIVE: CASE EVENT DATE: 20170308
